FAERS Safety Report 7483974-4 (Version None)
Quarter: 2011Q2

REPORT INFORMATION
  Report Type: 
  Country: None (occurrence: None)
  Receive Date: 20110513
  Receipt Date: 20110513
  Transmission Date: 20111010
  Serious: Yes (Other)
  Sender: FDA-Public Use
  Company Number: None

PATIENT
  Age: 55 Year
  Sex: Female
  Weight: 127.0072 kg

DRUGS (1)
  1. PROPRANOLOL [Suspect]
     Indication: HYPERTENSION
     Dosage: 120MG 1QD PO
     Route: 048
     Dates: start: 20110511, end: 20110512

REACTIONS (5)
  - FLUSHING [None]
  - HEADACHE [None]
  - RASH [None]
  - NAUSEA [None]
  - DIARRHOEA [None]
